FAERS Safety Report 17184228 (Version 1)
Quarter: 2019Q4

REPORT INFORMATION
  Report Type: Spontaneous
  Country: US (occurrence: US)
  Receive Date: 20191220
  Receipt Date: 20191220
  Transmission Date: 20200122
  Serious: No
  Sender: FDA-Public Use
  Company Number: US-RECKITT BENCKISER HEALTHCARE INT LIMITED-RB-88323-2019

PATIENT
  Age: 5 Year
  Sex: Male
  Weight: 31.75 kg

DRUGS (1)
  1. DELSYM [Suspect]
     Active Substance: DEXTROMETHORPHAN
     Indication: PRODUCT USED FOR UNKNOWN INDICATION
     Dosage: GIVEN UNDER 5ML AT 2:30 PM AND ANOTHER DOSE AT 10 PM
     Route: 065
     Dates: start: 20190512

REACTIONS (3)
  - Product administered to patient of inappropriate age [Unknown]
  - Inappropriate schedule of product administration [Unknown]
  - Overdose [Unknown]
